FAERS Safety Report 6637458-3 (Version None)
Quarter: 2010Q1

REPORT INFORMATION
  Report Type: 
  Country: None (occurrence: None)
  Receive Date: 20100311
  Receipt Date: 20100301
  Transmission Date: 20100710
  Serious: Yes (Life-Threatening, Other)
  Sender: FDA-Public Use
  Company Number: 007867

PATIENT
  Sex: Male
  Weight: 73 kg

DRUGS (3)
  1. KEPPRA [Suspect]
     Indication: MIGRAINE
     Dosage: (1000 MG QD, IN ONE DOSE ONLY ONCE ORAL)
     Route: 048
     Dates: start: 20100223, end: 20100223
  2. DEPAKENE [Concomitant]
  3. RIVOTRIL [Concomitant]

REACTIONS (2)
  - AGGRESSION [None]
  - ANGER [None]
